FAERS Safety Report 25100356 (Version 1)
Quarter: 2025Q1

REPORT INFORMATION
  Report Type: Spontaneous
  Country: CN (occurrence: CN)
  Receive Date: 20250320
  Receipt Date: 20250320
  Transmission Date: 20250409
  Serious: Yes (Life-Threatening, Other)
  Sender: PFIZER
  Company Number: CN-PFIZER INC-PV202500033162

PATIENT
  Age: 14 Year
  Sex: Male
  Weight: 45.9 kg

DRUGS (4)
  1. EPIRUBICIN [Suspect]
     Active Substance: EPIRUBICIN
     Indication: Brain neoplasm malignant
     Dosage: 22 MG, 2X/DAY
     Route: 041
     Dates: start: 20250116, end: 20250117
  2. IFOSFAMIDE [Suspect]
     Active Substance: IFOSFAMIDE
     Indication: Brain neoplasm malignant
     Dosage: 3.25 G, 1X/DAY
     Route: 041
     Dates: start: 20250116, end: 20250117
  3. DEXTROSE\SODIUM CHLORIDE [Concomitant]
     Active Substance: DEXTROSE\SODIUM CHLORIDE
     Indication: Vehicle solution use
     Dosage: 4:1 GLUCOSE AND SODIUM CHLORIDE 250ML
     Route: 041
     Dates: start: 20250116, end: 20250117
  4. SODIUM CHLORIDE [Concomitant]
     Active Substance: SODIUM CHLORIDE
     Indication: Vehicle solution use
     Dosage: 50 ML, 2X/DAY
     Route: 041
     Dates: start: 20250116, end: 20250117

REACTIONS (2)
  - Myelosuppression [Recovering/Resolving]
  - Off label use [Unknown]

NARRATIVE: CASE EVENT DATE: 20250116
